FAERS Safety Report 9136108 (Version 1)
Quarter: 2013Q1

REPORT INFORMATION
  Report Type: Spontaneous
  Country: US (occurrence: US)
  Receive Date: 20130304
  Receipt Date: 20130304
  Transmission Date: 20140127
  Serious: Yes (Death, Hospitalization)
  Sender: FDA-Public Use
  Company Number: US-GLAXOSMITHKLINE-A0766202A

PATIENT
  Age: 69 Year
  Sex: Male

DRUGS (3)
  1. AVANDIA [Suspect]
     Indication: DIABETES MELLITUS
     Dosage: 4MG TWICE PER DAY
     Route: 048
     Dates: start: 20010909, end: 200602
  2. VIOXX [Concomitant]
  3. CELEBREX [Concomitant]

REACTIONS (4)
  - Cerebral haemorrhage [Fatal]
  - Hypoxic-ischaemic encephalopathy [Unknown]
  - Cerebral ischaemia [Unknown]
  - Arteriosclerosis [Unknown]
